FAERS Safety Report 4448824-9 (Version None)
Quarter: 2004Q3

REPORT INFORMATION
  Report Type: 
  Country: None (occurrence: None)
  Receive Date: 20040909
  Receipt Date: 20040903
  Transmission Date: 20050211
  Serious: Yes (Disabling)
  Sender: FDA-Public Use
  Company Number: GB8899228JAN2002

PATIENT
  Age: 28 Year
  Sex: Male

DRUGS (2)
  1. EFFEXOR [Suspect]
     Indication: DEPRESSION
     Dosage: 300 MG 1X PER 1 DAY ORAL; SEE IMAGE
     Route: 048
     Dates: start: 19990101
  2. LACTULOSE [Concomitant]

REACTIONS (4)
  - AGITATION [None]
  - DRUG DEPENDENCE [None]
  - DRUG WITHDRAWAL SYNDROME [None]
  - IRRITABILITY [None]
